FAERS Safety Report 21588423 (Version 1)
Quarter: 2022Q4

REPORT INFORMATION
  Report Type: Spontaneous
  Country: US (occurrence: US)
  Receive Date: 20221114
  Receipt Date: 20221114
  Transmission Date: 20230113
  Serious: Yes (Hospitalization, Other)
  Sender: FDA-Public Use
  Company Number: US-CIPLA (EU) LIMITED-2022US06577

PATIENT
  Sex: Female

DRUGS (2)
  1. ALBUTEROL [Suspect]
     Active Substance: ALBUTEROL
     Indication: Bronchospasm
     Dosage: UNK
     Route: 065
  2. ALBUTEROL [Suspect]
     Active Substance: ALBUTEROL
     Dosage: UNK IN PICU
     Route: 065

REACTIONS (6)
  - Status asthmaticus [Unknown]
  - Treatment noncompliance [Unknown]
  - Respiratory symptom [Unknown]
  - Illness [Unknown]
  - Metapneumovirus infection [Unknown]
  - Bronchospasm [Unknown]
